FAERS Safety Report 11813081 (Version 1)
Quarter: 2015Q4

REPORT INFORMATION
  Report Type: Spontaneous
  Country: US (occurrence: US)
  Receive Date: 20151209
  Receipt Date: 20151209
  Transmission Date: 20160305
  Serious: Yes (Other)
  Sender: FDA-Public Use
  Company Number: US-BEH-2015056381

PATIENT
  Sex: Female
  Weight: 79 kg

DRUGS (15)
  1. ERYTHROMYCIN. [Concomitant]
     Active Substance: ERYTHROMYCIN
  2. AEROSPAN [Concomitant]
     Active Substance: FLUNISOLIDE
  3. VITAMIN D [Concomitant]
     Active Substance: CHOLECALCIFEROL
  4. TOPROL XL [Concomitant]
     Active Substance: METOPROLOL SUCCINATE
  5. LEVOTHYROXINE. [Concomitant]
     Active Substance: LEVOTHYROXINE
  6. VENTOLIN [Concomitant]
     Active Substance: ALBUTEROL SULFATE
  7. PRIVIGEN [Suspect]
     Active Substance: HUMAN IMMUNOGLOBULIN G
     Dosage: 10 GM VIALS
     Route: 058
  8. KETOROLAC TROMETHAMINE. [Concomitant]
     Active Substance: KETOROLAC TROMETHAMINE
  9. ASPIRIN. [Concomitant]
     Active Substance: ASPIRIN
  10. PRIVIGEN [Suspect]
     Active Substance: HUMAN IMMUNOGLOBULIN G
     Indication: IMMUNODEFICIENCY COMMON VARIABLE
     Dosage: 10 GM VIALS
     Route: 042
  11. HYOSCYAMINE SULFATE. [Concomitant]
     Active Substance: HYOSCYAMINE SULFATE
  12. ZITHROMAX [Concomitant]
     Active Substance: AZITHROMYCIN DIHYDRATE
  13. SINGULAIR [Concomitant]
     Active Substance: MONTELUKAST SODIUM
  14. PREDNISONE. [Concomitant]
     Active Substance: PREDNISONE
  15. ALBUTEROL. [Concomitant]
     Active Substance: ALBUTEROL

REACTIONS (1)
  - Kidney infection [Recovered/Resolved]
